FAERS Safety Report 5152148-4 (Version None)
Quarter: 2006Q4

REPORT INFORMATION
  Report Type: 
  Country: None (occurrence: None)
  Receive Date: 20061116
  Receipt Date: 20061109
  Transmission Date: 20070319
  Serious: Yes (Hospitalization)
  Sender: FDA-Public Use
  Company Number: FR-BRISTOL-MYERS SQUIBB COMPANY-13575055

PATIENT
  Age: 60 Year
  Sex: Male

DRUGS (6)
  1. ELISOR TABS [Suspect]
     Route: 048
     Dates: end: 20061101
  2. DAFALGAN [Concomitant]
  3. LOXEN [Concomitant]
  4. NEXIUM [Concomitant]
  5. CELLCEPT [Concomitant]
  6. NEORAL [Concomitant]

REACTIONS (2)
  - MYALGIA [None]
  - RUPTURED CEREBRAL ANEURYSM [None]
